FAERS Safety Report 17355281 (Version 2)
Quarter: 2020Q4

REPORT INFORMATION
  Report Type: Report from Study
  Country: US (occurrence: US)
  Receive Date: 20200131
  Receipt Date: 20201207
  Transmission Date: 20210113
  Serious: Yes (Other)
  Sender: FDA-Public Use
  Company Number: US-JNJFOC-20200140262

PATIENT
  Age: 57 Year
  Sex: Male

DRUGS (7)
  1. PRAZOSIN. [Concomitant]
     Active Substance: PRAZOSIN
     Indication: INSOMNIA
  2. DEPLIN [Concomitant]
     Active Substance: LEVOMEFOLATE CALCIUM
  3. VIIBRYD [Concomitant]
     Active Substance: VILAZODONE HYDROCHLORIDE
  4. AMBIEN [Concomitant]
     Active Substance: ZOLPIDEM TARTRATE
     Indication: INSOMNIA
  5. LUNESTA [Concomitant]
     Active Substance: ESZOPICLONE
     Indication: INSOMNIA
     Dosage: 3
  6. ATIVAN [Concomitant]
     Active Substance: LORAZEPAM
     Dosage: TID, QID
  7. SPRAVATO [Suspect]
     Active Substance: ESKETAMINE
     Indication: DEPRESSION
     Dosage: TOTAL 23 DOSES
     Dates: start: 20191008, end: 20200310

REACTIONS (15)
  - Diarrhoea [Unknown]
  - Eye disorder [Unknown]
  - Muscle spasms [Unknown]
  - Autoscopy [Unknown]
  - Vomiting [Unknown]
  - Panic attack [Unknown]
  - Respiratory rate increased [Unknown]
  - Vision blurred [Unknown]
  - Hallucination [Unknown]
  - Nausea [Unknown]
  - Pain [Unknown]
  - Dissociation [Recovered/Resolved]
  - Cold sweat [Unknown]
  - Fatigue [Unknown]
  - Intentional self-injury [Unknown]

NARRATIVE: CASE EVENT DATE: 20200114
